FAERS Safety Report 20036296 (Version 1)
Quarter: 2021Q4

REPORT INFORMATION
  Report Type: Spontaneous
  Country: US (occurrence: US)
  Receive Date: 20211105
  Receipt Date: 20211105
  Transmission Date: 20220303
  Serious: Yes (Other)
  Sender: FDA-Public Use
  Company Number: US-PHARMING-PHAUS2021000570

PATIENT

DRUGS (1)
  1. RUCONEST [Suspect]
     Active Substance: HUMAN C1-ESTERASE INHIBITOR
     Indication: Hereditary angioedema
     Dosage: UNK
     Route: 042
     Dates: start: 20171120

REACTIONS (15)
  - Anaphylactic reaction [Unknown]
  - Myalgia [Unknown]
  - Arthralgia [Unknown]
  - Oropharyngeal pain [Unknown]
  - Migraine [Unknown]
  - Chest discomfort [Unknown]
  - Fatigue [Unknown]
  - Pharyngeal swelling [Unknown]
  - Lethargy [Unknown]
  - Malaise [Unknown]
  - Decreased appetite [Unknown]
  - Dysphonia [Unknown]
  - Anxiety [Unknown]
  - Nausea [Unknown]
  - Headache [Unknown]
